FAERS Safety Report 7361543-4 (Version None)
Quarter: 2011Q1

REPORT INFORMATION
  Report Type: 
  Country: None (occurrence: None)
  Receive Date: 20110318
  Receipt Date: 20110301
  Transmission Date: 20110831
  Serious: Yes (Other)
  Sender: FDA-Public Use
  Company Number: BR-PFIZER INC-2011058674

PATIENT
  Sex: Female

DRUGS (2)
  1. DEPO-PROVERA [Suspect]
     Indication: VAGINAL HAEMORRHAGE
     Dosage: UNK
     Route: 030
  2. DEPO-PROVERA [Suspect]
     Indication: OFF LABEL USE

REACTIONS (1)
  - HAEMORRHAGE [None]
